APPROVED DRUG PRODUCT: SINOGRAFIN
Active Ingredient: DIATRIZOATE MEGLUMINE; IODIPAMIDE MEGLUMINE
Strength: 52.7%;26.8%
Dosage Form/Route: SOLUTION;INTRAUTERINE
Application: N011324 | Product #002
Applicant: BRACCO DIAGNOSTICS INC
Approved: Approved Prior to Jan 1, 1982 | RLD: Yes | RS: No | Type: DISCN